FAERS Safety Report 9627172 (Version 3)
Quarter: 2013Q4

REPORT INFORMATION
  Report Type: Report from Study
  Country: JP (occurrence: JP)
  Receive Date: 20131016
  Receipt Date: 20131105
  Transmission Date: 20140711
  Serious: Yes (Life-Threatening)
  Sender: FDA-Public Use
  Company Number: JP-TAKEDA-TCI2013A05375

PATIENT
  Age: 85 Year
  Sex: Female
  Weight: 49.6 kg

DRUGS (14)
  1. LANSOPRAZOLE [Suspect]
     Indication: PROPHYLAXIS AGAINST GASTROINTESTINAL ULCER
     Dosage: 15 MG, QD
     Route: 048
     Dates: start: 20111125, end: 20111214
  2. BAYASPIRIN [Suspect]
     Indication: THROMBOSIS PROPHYLAXIS
     Dosage: 100 MG,1 DAY
     Route: 048
     Dates: start: 20111125, end: 20130420
  3. CONSTAN                            /00595201/ [Concomitant]
     Dosage: 0.4 MG,1 DAY
     Route: 048
  4. TOWARAT [Concomitant]
     Dosage: 40 MG, 1 DAY
     Route: 048
  5. TOWARAT [Concomitant]
     Route: 048
  6. INHIBACE                           /00845401/ [Concomitant]
     Dosage: 1 MG, 1 DAY
     Route: 048
  7. SULPIRIDE [Concomitant]
     Dosage: 50 MG, 1 DAY
     Route: 048
  8. VESICARE [Concomitant]
     Indication: HYPERTONIC BLADDER
     Dosage: 6 MG,1 DAY
     Route: 048
  9. PLAVIX [Concomitant]
     Indication: ANGINA PECTORIS
     Dosage: 75 MG,1 DAY
     Route: 048
     Dates: start: 20111125
  10. PLETAAL [Concomitant]
     Indication: ANGINA PECTORIS
     Dosage: 200 MG, 1 DAY
     Route: 048
     Dates: start: 20111125
  11. NIKORANMART [Concomitant]
     Indication: ANGINA PECTORIS
     Dosage: 5 MG, 1 DAY
     Route: 048
     Dates: start: 20111125
  12. ZESTROMIN [Concomitant]
     Dosage: 0.25 MG,1 DAY
     Route: 048
  13. ZESTROMIN [Concomitant]
     Route: 048
  14. MEVAN                              /00880402/ [Concomitant]
     Dosage: 5 MG, 1 DAY
     Route: 048

REACTIONS (2)
  - Gastric ulcer [Recovered/Resolved]
  - Diarrhoea [Recovered/Resolved]
